FAERS Safety Report 9160546 (Version 1)
Quarter: 2013Q1

REPORT INFORMATION
  Report Type: Spontaneous
  Country: AU (occurrence: None)
  Receive Date: 20130215
  Receipt Date: 20130215
  Transmission Date: 20140127
  Serious: Yes (Other)
  Sender: FDA-Public Use
  Company Number: 2013-0718

PATIENT
  Age: 53 Year
  Sex: Male

DRUGS (4)
  1. LANREOTIDE AUTOGEL (LANREOTIDE) (LANREOTIDE ACETATE) [Suspect]
  2. ASPIRIN (ACETYLSALICYLIC ACID) [Concomitant]
  3. ESOMEPRAZOLE MAGNESIUM TRIHYDRATE (ESOMEPRAZOLE MAGNESIUM) [Concomitant]
  4. HYDRALYTE ELECTROLYTE POWDER (ORANGE) (ELECTROLYTE) [Concomitant]

REACTIONS (1)
  - Sick sinus syndrome [None]
